FAERS Safety Report 21219351 (Version 1)
Quarter: 2022Q3

REPORT INFORMATION
  Report Type: Spontaneous
  Country: US (occurrence: US)
  Receive Date: 20220817
  Receipt Date: 20220817
  Transmission Date: 20221027
  Serious: Yes (Other)
  Sender: FDA-Public Use
  Company Number: US-SUN PHARMACEUTICAL INDUSTRIES LTD-2022R1-348774

PATIENT
  Age: 60 Year
  Sex: Female

DRUGS (4)
  1. CARBOPLATIN [Suspect]
     Active Substance: CARBOPLATIN
     Indication: Chemotherapy
     Dosage: UNK (AUC 4)
     Route: 065
  2. PACLITAXEL [Suspect]
     Active Substance: PACLITAXEL
     Indication: Chemotherapy
     Dosage: UNK (150 MG/M2)
     Route: 065
  3. PEGFILGRASTIM [Suspect]
     Active Substance: PEGFILGRASTIM
     Indication: Prophylaxis
     Dosage: UNK (6 MG)
     Route: 065
  4. BEVACIZUMAB [Concomitant]
     Active Substance: BEVACIZUMAB
     Indication: Chemotherapy
     Dosage: UNK (15 MG/KG, EVERY 2-4 WEEKS)
     Route: 065

REACTIONS (17)
  - Mycobacterium avium complex infection [Unknown]
  - Hyperbilirubinaemia [Unknown]
  - Liver function test increased [Unknown]
  - Urinary retention postoperative [Unknown]
  - Dyspnoea exertional [Unknown]
  - Bowel movement irregularity [Unknown]
  - Bone pain [Unknown]
  - Neuropathy peripheral [Unknown]
  - Nausea [Unknown]
  - Anxiety [Unknown]
  - Palpitations [Unknown]
  - Abdominal pain [Unknown]
  - Abdominal discomfort [Unknown]
  - Headache [Unknown]
  - Constipation [Unknown]
  - Fatigue [Unknown]
  - Diarrhoea [Unknown]
